FAERS Safety Report 12810509 (Version 1)
Quarter: 2016Q4

REPORT INFORMATION
  Report Type: Spontaneous
  Country: NL (occurrence: NL)
  Receive Date: 20161005
  Receipt Date: 20161005
  Transmission Date: 20170207
  Serious: Yes (Other)
  Sender: FDA-Public Use
  Company Number: NL-TEVA-691401ACC

PATIENT
  Age: 23 Year
  Sex: Female
  Weight: 65 kg

DRUGS (1)
  1. AMOXICILLINE CAPSULE 500MG [Suspect]
     Active Substance: AMOXICILLIN
     Indication: PNEUMONIA
     Dosage: 1500 MILLIGRAM DAILY; 3 TIMES PER DAY 1 PIECE(S)
     Route: 048
     Dates: start: 20160815, end: 20160822

REACTIONS (4)
  - Pruritus [Recovered/Resolved]
  - Rash [Recovering/Resolving]
  - Angioedema [Recovered/Resolved]
  - Pain [Unknown]

NARRATIVE: CASE EVENT DATE: 20160822
